FAERS Safety Report 10037882 (Version 1)
Quarter: 2014Q1

REPORT INFORMATION
  Report Type: Spontaneous
  Country: US (occurrence: US)
  Receive Date: 20140326
  Receipt Date: 20140326
  Transmission Date: 20141002
  Serious: No
  Sender: FDA-Public Use
  Company Number: US-PFIZER INC-2014083644

PATIENT
  Age: 93 Year
  Sex: Male
  Weight: 72.56 kg

DRUGS (2)
  1. ADVIL [Suspect]
     Indication: PAIN
     Dosage: 400 MG, EVERY 6 HOURS
     Dates: start: 2014
  2. BABY ASPIRIN [Concomitant]
     Dosage: 81 MG, DAILY

REACTIONS (1)
  - Hyperhidrosis [Not Recovered/Not Resolved]
